FAERS Safety Report 7102723-2 (Version None)
Quarter: 2010Q4

REPORT INFORMATION
  Report Type: 
  Country: None (occurrence: None)
  Receive Date: 20101115
  Receipt Date: 20101102
  Transmission Date: 20110411
  Serious: Yes (Other)
  Sender: FDA-Public Use
  Company Number: PHHY2010FR75929

PATIENT
  Sex: Female

DRUGS (8)
  1. MYFORTIC [Suspect]
     Dosage: UNK
     Route: 048
     Dates: start: 20080601, end: 20080701
  2. ORENCIA [Suspect]
     Dosage: 250 MG , ONE PERFUSION MONTHLY
     Route: 042
     Dates: start: 20080601, end: 20080701
  3. BACTRIM [Suspect]
     Dosage: 1 DF, QD
     Dates: start: 20080601, end: 20080701
  4. APRANAX [Suspect]
     Dosage: 1 DF, QD
     Dates: start: 20080601, end: 20080701
  5. CORTANCYL [Concomitant]
     Dosage: UNK
     Route: 048
     Dates: start: 20080601, end: 20081230
  6. COLCHICINE [Concomitant]
     Dosage: 1 DF, QD
     Route: 048
     Dates: start: 20080601, end: 20081230
  7. VALACYCLOVIR HYDROCHLORIDE [Concomitant]
     Dosage: 1 DF, QD
     Route: 048
     Dates: start: 20080601, end: 20081230
  8. SPECIAFOLDINE [Concomitant]
     Dosage: 1 DF, QD
     Route: 048
     Dates: start: 20080601

REACTIONS (3)
  - CAESAREAN SECTION [None]
  - DRUG EXPOSURE DURING PREGNANCY [None]
  - PREMATURE LABOUR [None]
